FAERS Safety Report 6283420-2 (Version None)
Quarter: 2009Q3

REPORT INFORMATION
  Report Type: 
  Country: None (occurrence: None)
  Receive Date: 20090724
  Receipt Date: 20090403
  Transmission Date: 20100115
  Serious: No
  Sender: FDA-Public Use
  Company Number: US-ALEXION-A200900246

PATIENT
  Sex: Female
  Weight: 62.585 kg

DRUGS (21)
  1. SOLIRIS [Suspect]
     Indication: PAROXYSMAL NOCTURNAL HAEMOGLOBINURIA
     Dosage: 600 MG, QWK X4
     Route: 042
     Dates: start: 20081217
  2. SOLIRIS [Suspect]
     Dosage: 900 MG, Q2WK
     Route: 042
     Dates: start: 20090116
  3. ARIMIDEX [Concomitant]
     Indication: NEOPLASM MALIGNANT
     Dosage: 1 MG, QD
     Route: 048
  4. VITAMIN B12                        /00056201/ [Concomitant]
     Dosage: 1/MONTH
  5. SYNTHROID [Concomitant]
     Dosage: 150 UG, QD
     Route: 048
  6. ATIVAN [Concomitant]
     Indication: ANXIETY
     Dosage: 0.5 MG, TID
     Route: 048
  7. ALBUTEROL [Concomitant]
     Indication: RESPIRATORY DISORDER
     Dosage: UNK
     Route: 055
  8. POTASSIUM ACETATE [Concomitant]
     Indication: SUPPLEMENTATION THERAPY
     Dosage: 30 MG, BID
     Route: 048
  9. FOLATE [Concomitant]
     Indication: PAROXYSMAL NOCTURNAL HAEMOGLOBINURIA
     Dosage: 1 MG, QD
     Route: 048
  10. ZOVIRAX                            /00587301/ [Concomitant]
     Indication: HERPES VIRUS INFECTION
     Dosage: 200 MG, BID PRN
     Route: 048
  11. PROZAC                             /00724401/ [Concomitant]
     Indication: DEPRESSION
     Dosage: 20 MG, QD
     Route: 048
  12. PROTONIX                           /01263201/ [Concomitant]
     Indication: GASTRIC DISORDER
     Dosage: 40 MG, BID
     Route: 048
  13. ALDACTONE [Concomitant]
     Indication: OEDEMA
     Dosage: 50 MG, QD
     Route: 048
  14. LASIX [Concomitant]
     Indication: OEDEMA
     Dosage: 40 MG, BID PRN
     Route: 048
  15. FLONASE [Concomitant]
     Indication: RESPIRATORY THERAPY
     Dosage: 110 UG, Q12H, PRN
     Route: 055
  16. SINGULAIR [Concomitant]
     Indication: RESPIRATORY THERAPY
     Dosage: 10 MG, QD PRN
     Route: 048
  17. ASPIRIN [Concomitant]
     Indication: CARDIOVASCULAR EVENT PROPHYLAXIS
     Dosage: 81 MG, QD
     Route: 048
  18. MICARDIS [Concomitant]
     Indication: CARDIAC DISORDER
     Dosage: 40 MG, QD
     Route: 048
  19. DIGOXIN [Concomitant]
     Indication: CARDIAC DISORDER
     Dosage: 125 UG, QD
     Route: 048
  20. DARVOCET-N 100 [Concomitant]
     Dosage: 100 Q6H PRN
     Route: 048
  21. PRIMATENE MIST [Concomitant]
     Indication: RESPIRATORY THERAPY
     Dosage: UNK

REACTIONS (2)
  - ASTHMA [None]
  - HYPERSENSITIVITY [None]
